FAERS Safety Report 18935178 (Version 1)
Quarter: 2021Q1

REPORT INFORMATION
  Report Type: Spontaneous
  Country: US (occurrence: US)
  Receive Date: 20210224
  Receipt Date: 20210224
  Transmission Date: 20210420
  Serious: No
  Sender: FDA-Public Use
  Company Number: US-MYLANLABS-2021M1010105

PATIENT
  Sex: Female
  Weight: 62 kg

DRUGS (1)
  1. CLOBETASOL PROPIONATE CREAM USP [Suspect]
     Active Substance: CLOBETASOL PROPIONATE
     Indication: RASH
     Dosage: UNK
     Route: 061

REACTIONS (1)
  - Drug ineffective [Not Recovered/Not Resolved]
